APPROVED DRUG PRODUCT: APOKYN
Active Ingredient: APOMORPHINE HYDROCHLORIDE
Strength: 20MG/2ML (10MG/ML)
Dosage Form/Route: INJECTABLE;SUBCUTANEOUS
Application: N021264 | Product #001
Applicant: MDD US OPERATIONS LLC
Approved: Apr 20, 2004 | RLD: No | RS: No | Type: DISCN